FAERS Safety Report 6737951-9 (Version None)
Quarter: 2010Q2

REPORT INFORMATION
  Report Type: 
  Country: None (occurrence: None)
  Receive Date: 20100524
  Receipt Date: 20100326
  Transmission Date: 20101027
  Serious: No
  Sender: FDA-Public Use
  Company Number: A0844067A

PATIENT
  Age: 68 Year
  Sex: Female
  Weight: 50 kg

DRUGS (12)
  1. ARZERRA [Suspect]
     Dosage: 2000MG UNKNOWN
     Route: 042
     Dates: start: 20100119, end: 20100209
  2. POTASSIUM [Concomitant]
     Route: 048
  3. BENADRYL [Concomitant]
  4. APAP TAB [Concomitant]
  5. SOLU-CORTEF [Concomitant]
  6. BUPROPION HCL [Concomitant]
     Dosage: 100MG PER DAY
     Route: 048
  7. MIRTAZAPINE [Concomitant]
     Dosage: 15MG PER DAY
     Route: 048
  8. FOLIC ACID [Concomitant]
     Dosage: 2MG PER DAY
     Route: 048
  9. VITAMIN TAB [Concomitant]
  10. BACTRIM [Concomitant]
     Route: 048
  11. CALCIUM + D. VITAMIN [Concomitant]
     Route: 048
  12. MEGACE [Concomitant]
     Dosage: 40MG PER DAY
     Route: 048

REACTIONS (2)
  - LYMPH NODE PAIN [None]
  - LYMPHADENOPATHY [None]
